FAERS Safety Report 11531452 (Version 1)
Quarter: 2015Q3

REPORT INFORMATION
  Report Type: Report from Study
  Country: BR (occurrence: BR)
  Receive Date: 20150921
  Receipt Date: 20150921
  Transmission Date: 20151125
  Serious: Yes (Other)
  Sender: FDA-Public Use
  Company Number: ALCN2015BR005739

PATIENT
  Age: 59 Year
  Sex: Female
  Weight: 73 kg

DRUGS (2)
  1. DUOTRAV BAC-FREE [Suspect]
     Active Substance: TIMOLOL\TRAVOPROST
     Indication: INTRAOCULAR PRESSURE INCREASED
     Dosage: 1 GTT, QD
     Route: 047
     Dates: start: 20150721
  2. LAGRICEL [Suspect]
     Active Substance: HYALURONATE SODIUM
     Indication: EYE LUBRICATION THERAPY
     Dosage: 1 GTT, QID
     Route: 047
     Dates: start: 20150721, end: 20150825

REACTIONS (4)
  - Walking aid user [Not Recovered/Not Resolved]
  - Limb injury [Not Recovered/Not Resolved]
  - Sciatic nerve injury [Not Recovered/Not Resolved]
  - Pain in extremity [Not Recovered/Not Resolved]

NARRATIVE: CASE EVENT DATE: 20150819
